FAERS Safety Report 15536221 (Version 1)
Quarter: 2018Q4

REPORT INFORMATION
  Report Type: Spontaneous
  Country: US (occurrence: US)
  Receive Date: 20181015
  Receipt Date: 20181015
  Transmission Date: 20190205
  Serious: Yes (Other)
  Sender: FDA-Public Use
  Company Number: None

PATIENT
  Age: 73 Year
  Sex: Male

DRUGS (1)
  1. SUTENT [Suspect]
     Active Substance: SUNITINIB MALATE
     Indication: RENAL CANCER
     Dosage: 1 CAPSULE QD 4WKS ON 2WKS OFF; ORAL?
     Route: 048
     Dates: start: 20180726

REACTIONS (8)
  - Haemorrhage [None]
  - Decreased appetite [None]
  - Contusion [None]
  - Abdominal discomfort [None]
  - Arthralgia [None]
  - Nausea [None]
  - Dyspepsia [None]
  - Diarrhoea [None]
